FAERS Safety Report 10073619 (Version 1)
Quarter: 2014Q2

REPORT INFORMATION
  Report Type: Spontaneous
  Country: US (occurrence: US)
  Receive Date: 20140411
  Receipt Date: 20140411
  Transmission Date: 20141212
  Serious: Yes (Other)
  Sender: FDA-Public Use
  Company Number: PHEH2014US007049

PATIENT
  Sex: Female
  Weight: 42.64 kg

DRUGS (1)
  1. RECLAST [Suspect]
     Dosage: UNK
     Route: 042

REACTIONS (8)
  - Eye haemorrhage [Unknown]
  - Gait disturbance [Unknown]
  - Road traffic accident [Unknown]
  - Neuropathy peripheral [Unknown]
  - Vision blurred [Unknown]
  - Eye pain [Unknown]
  - Concomitant disease aggravated [Unknown]
  - Pain in extremity [Unknown]
